FAERS Safety Report 5894310-9 (Version None)
Quarter: 2008Q3

REPORT INFORMATION
  Report Type: 
  Country: None (occurrence: None)
  Receive Date: 20080923
  Receipt Date: 20080422
  Transmission Date: 20090109
  Serious: No
  Sender: FDA-Public Use
  Company Number: US-ASTRAZENECA-2008UW08233

PATIENT
  Age: 19 Year
  Sex: Female

DRUGS (5)
  1. SEROQUEL [Suspect]
     Route: 048
  2. CALCIUM GLUCONATE [Concomitant]
  3. MAGNESIUM SULFATE [Concomitant]
  4. MOTRIN [Concomitant]
  5. BENADRYL [Concomitant]

REACTIONS (1)
  - DRUG SCREEN POSITIVE [None]
